FAERS Safety Report 18351309 (Version 1)
Quarter: 2020Q4

REPORT INFORMATION
  Report Type: Spontaneous
  Country: US (occurrence: US)
  Receive Date: 20201006
  Receipt Date: 20201006
  Transmission Date: 20210114
  Serious: No
  Sender: FDA-Public Use
  Company Number: US-AMGEN-USASP2020158649

PATIENT
  Age: 80 Year
  Sex: Male

DRUGS (1)
  1. REPATHA [Suspect]
     Active Substance: EVOLOCUMAB
     Indication: HYPERCHOLESTEROLAEMIA
     Dosage: 140 MILLIGRAM, Q2WK
     Route: 065
     Dates: start: 2017

REACTIONS (3)
  - Wrong technique in product usage process [Unknown]
  - Device difficult to use [Unknown]
  - Injection site pain [Unknown]

NARRATIVE: CASE EVENT DATE: 20200929
